FAERS Safety Report 24716312 (Version 1)
Quarter: 2024Q4

REPORT INFORMATION
  Report Type: Report from Study
  Country: IN (occurrence: IN)
  Receive Date: 20241210
  Receipt Date: 20241210
  Transmission Date: 20250114
  Serious: Yes (Death, Other)
  Sender: ROCHE
  Company Number: IN-ROCHE-10000099092

PATIENT
  Age: 58 Year
  Sex: Male
  Weight: 48.2 kg

DRUGS (1)
  1. POLIVY [Suspect]
     Active Substance: POLATUZUMAB VEDOTIN-PIIQ
     Indication: B-cell lymphoma
     Route: 042
     Dates: start: 20240905

REACTIONS (5)
  - Diarrhoea [Unknown]
  - Off label use [Unknown]
  - Blood potassium decreased [Unknown]
  - Hypotension [Fatal]
  - Urinary retention [Fatal]

NARRATIVE: CASE EVENT DATE: 20241116
